FAERS Safety Report 4713676-6 (Version None)
Quarter: 2005Q3

REPORT INFORMATION
  Report Type: 
  Country: None (occurrence: None)
  Receive Date: 20050712
  Receipt Date: 20050628
  Transmission Date: 20060218
  Serious: Yes (Hospitalization)
  Sender: FDA-Public Use
  Company Number: TCI2004A03756

PATIENT
  Age: 53 Year
  Sex: Male

DRUGS (17)
  1. PIOGLITAZONE HCL [Suspect]
     Indication: DIABETES MELLITUS NON-INSULIN-DEPENDENT
     Dosage: 15 MG (15 MG,1 IN 1 D)
     Dates: start: 20040805, end: 20040930
  2. PIOGLITAZONE HCL [Suspect]
     Indication: DIABETES MELLITUS NON-INSULIN-DEPENDENT
     Dosage: 15 MG (15 MG,1 IN 1 D)
     Dates: start: 20041001, end: 20041014
  3. . [Concomitant]
  4. BASEN TABLETS 0.2 (VOGLIBOSE) [Suspect]
     Indication: DIABETES MELLITUS NON-INSULIN-DEPENDENT
     Dosage: SEE IMAGE
     Dates: start: 20040511, end: 20040804
  5. BASEN TABLETS 0.2 (VOGLIBOSE) [Suspect]
     Indication: DIABETES MELLITUS NON-INSULIN-DEPENDENT
     Dosage: SEE IMAGE
     Dates: start: 20041014
  6. . [Concomitant]
  7. VOGLIBOSE (VOGLIBOSE) [Suspect]
     Indication: DIABETES MELLITUS NON-INSULIN-DEPENDENT
     Dosage: 0.6 MG OR PLACEBO (3 IN 1 D),PER ORAL
     Route: 048
     Dates: start: 20040805, end: 20041014
  8. ACTOS [Concomitant]
  9. FAMOTIDINE [Concomitant]
  10. DIOVAN [Concomitant]
  11. DOGMATYL (SULPIRIDE) [Concomitant]
  12. EPADEL S (ETHYL ICOSAPENTATE) [Concomitant]
  13. BEZATOL SR (BEZAFIBRATE) [Concomitant]
  14. VIAGRA [Concomitant]
  15. EXACIN (ISEPAMICIN SULFATE) [Concomitant]
  16. MOHRUS (KETOPROFEN) [Concomitant]
  17. TARIVID (OFLOXACIN) [Concomitant]

REACTIONS (3)
  - BLADDER CANCER [None]
  - HAEMATURIA [None]
  - TRANSITIONAL CELL CARCINOMA [None]
